FAERS Safety Report 4305652-2 (Version None)
Quarter: 2004Q1

REPORT INFORMATION
  Report Type: 
  Country: None (occurrence: None)
  Receive Date: 20040226
  Receipt Date: 20031229
  Transmission Date: 20041129
  Serious: No
  Sender: FDA-Public Use
  Company Number: US-BRISTOL-MYERS SQUIBB COMPANY-12466454

PATIENT
  Age: 13 Year
  Sex: Male

DRUGS (5)
  1. ABILIFY [Suspect]
     Indication: BIPOLAR DISORDER
     Dosage: ONE 10 MG TAB ONCE A DAY, THEN INCREASED(DATE NOT PROVIDED)TO ONE 15 MG TAB ONCE A DAY-CONTINUES
     Route: 048
     Dates: start: 20031209
  2. SEROQUEL [Concomitant]
     Dosage: REDUCED TO 200 MG
  3. STRATTERA [Concomitant]
  4. QUINIDINE HCL [Concomitant]
  5. TRILEPTAL [Concomitant]

REACTIONS (2)
  - EYE ROLLING [None]
  - INSOMNIA [None]
